FAERS Safety Report 14498108 (Version 1)
Quarter: 2018Q1

REPORT INFORMATION
  Report Type: Spontaneous
  Country: US (occurrence: US)
  Receive Date: 20180206
  Receipt Date: 20180206
  Transmission Date: 20180509
  Serious: Yes (Other)
  Sender: FDA-Public Use
  Company Number: None

PATIENT

DRUGS (3)
  1. SITAGLIPTIN [Suspect]
     Active Substance: SITAGLIPTIN
  2. INSULIN ASPART [Concomitant]
     Active Substance: INSULIN ASPART
  3. GLIMEPERIDE [Suspect]
     Active Substance: GLIMEPIRIDE

REACTIONS (2)
  - Therapy cessation [None]
  - Blood glucose decreased [None]
